FAERS Safety Report 5572532-4 (Version None)
Quarter: 2007Q4

REPORT INFORMATION
  Report Type: 
  Country: None (occurrence: None)
  Receive Date: 20071222
  Receipt Date: 20071212
  Transmission Date: 20080405
  Serious: Yes (Other)
  Sender: FDA-Public Use
  Company Number: US-PFIZER INC-2007034971

PATIENT
  Sex: Female
  Weight: 54.9 kg

DRUGS (2)
  1. LYRICA [Suspect]
     Indication: PARAESTHESIA
     Route: 048
  2. LYRICA [Suspect]
     Indication: HYPOAESTHESIA

REACTIONS (4)
  - ACTIVITIES OF DAILY LIVING IMPAIRED [None]
  - HYPOAESTHESIA [None]
  - MUSCLE SPASMS [None]
  - WEIGHT INCREASED [None]
